FAERS Safety Report 7354856-3 (Version None)
Quarter: 2011Q1

REPORT INFORMATION
  Report Type: 
  Country: None (occurrence: None)
  Receive Date: 20110307
  Receipt Date: 20110223
  Transmission Date: 20110831
  Serious: Yes (Death)
  Sender: FDA-Public Use
  Company Number: 027043

PATIENT
  Sex: Male
  Weight: 75 kg

DRUGS (16)
  1. NEXIUM [Concomitant]
  2. VIMPAT [Suspect]
     Indication: EPILEPSY
     Dosage: (ORAL) (100 MG BID ORAL)
     Route: 048
     Dates: start: 20101025, end: 20101025
  3. VIMPAT [Suspect]
     Indication: EPILEPSY
     Dosage: (ORAL) (100 MG BID ORAL)
     Route: 048
     Dates: start: 20101026
  4. KEPPRA [Concomitant]
  5. PREDNISOLON /00016201/ [Concomitant]
  6. AMLODIPINE BESYLATE [Concomitant]
  7. ACTACAND PLUS [Concomitant]
  8. FRAGMIN [Concomitant]
  9. ACETYLCYSTEINE [Concomitant]
  10. KALIUM /00031402/ [Concomitant]
  11. FENTANYL [Concomitant]
  12. METFORMIN [Concomitant]
  13. SULTANOL /00139501/ [Concomitant]
  14. SCOPODERM /00008701/ [Concomitant]
  15. THIAMINE HCL [Concomitant]
  16. MCP /00041901/ [Concomitant]

REACTIONS (23)
  - HAEMOGLOBIN DECREASED [None]
  - GLOMERULAR FILTRATION RATE DECREASED [None]
  - RENAL FAILURE [None]
  - BLOOD SODIUM DECREASED [None]
  - EMOTIONAL DISORDER [None]
  - AGITATION [None]
  - DYSPEPSIA [None]
  - SENSORY DISTURBANCE [None]
  - DYSPHAGIA [None]
  - HAEMATOCRIT DECREASED [None]
  - MUSCULOSKELETAL PAIN [None]
  - FALL [None]
  - GENERAL PHYSICAL HEALTH DETERIORATION [None]
  - FLUID RETENTION [None]
  - NO THERAPEUTIC RESPONSE [None]
  - DISORIENTATION [None]
  - BLOOD POTASSIUM INCREASED [None]
  - COGNITIVE DISORDER [None]
  - COUGH [None]
  - DEHYDRATION [None]
  - PNEUMONIA ASPIRATION [None]
  - PSYCHOTIC DISORDER [None]
  - UNEVALUABLE EVENT [None]
